FAERS Safety Report 6072085-0 (Version None)
Quarter: 2009Q1

REPORT INFORMATION
  Report Type: 
  Country: None (occurrence: None)
  Receive Date: 20090210
  Receipt Date: 20090205
  Transmission Date: 20090719
  Serious: Yes (Death, Hospitalization, Other)
  Sender: FDA-Public Use
  Company Number: FR-BRISTOL-MYERS SQUIBB COMPANY-14496137

PATIENT
  Age: 88 Year
  Sex: Female

DRUGS (8)
  1. PARACETAMOL TABS [Suspect]
     Indication: PAIN
     Dates: start: 20081207, end: 20081230
  2. COUMADIN [Interacting]
     Indication: ATRIAL FIBRILLATION
     Dates: start: 20040101, end: 20081224
  3. MICONAZOLE NITRATE [Interacting]
     Dosage: 1DF=6 SPOONS
     Dates: start: 20081212, end: 20081213
  4. DIANTALVIC [Suspect]
  5. SOTALEX [Concomitant]
  6. REMINYL [Concomitant]
  7. LEVOTHYROX [Concomitant]
  8. CALCIUM + VITAMIN D [Concomitant]

REACTIONS (7)
  - APNOEA [None]
  - DRUG INTERACTION [None]
  - HAEMATOMA [None]
  - INTERNATIONAL NORMALISED RATIO INCREASED [None]
  - MALAISE [None]
  - MEDICATION ERROR [None]
  - MULTI-ORGAN FAILURE [None]
